FAERS Safety Report 9065075 (Version 1)
Quarter: 2013Q1

REPORT INFORMATION
  Report Type: Spontaneous
  Country: US (occurrence: US)
  Receive Date: 20130130
  Receipt Date: 20130130
  Transmission Date: 20140127
  Serious: No
  Sender: FDA-Public Use
  Company Number: US-ASTRAZENECA-2013SE01917

PATIENT
  Age: 70 Year
  Sex: Female
  Weight: 67.1 kg

DRUGS (5)
  1. FASLODEX [Suspect]
     Indication: BREAST CANCER METASTATIC
     Route: 030
     Dates: start: 201207
  2. JUICE PLUS [Concomitant]
     Indication: MEDICAL DIET
     Route: 048
  3. TRIAMTERENE-HCT [Concomitant]
     Indication: HYPERTENSION
     Route: 048
  4. XGEVA [Concomitant]
     Indication: MUSCULOSKELETAL DISORDER
  5. RADIATION THERAPY [Concomitant]

REACTIONS (4)
  - Muscle fatigue [Recovered/Resolved]
  - Feeling cold [Recovered/Resolved]
  - Influenza like illness [Recovered/Resolved]
  - Injection site pain [Not Recovered/Not Resolved]
